FAERS Safety Report 24293742 (Version 2)
Quarter: 2025Q3

REPORT INFORMATION
  Report Type: Spontaneous
  Country: US (occurrence: US)
  Receive Date: 20240906
  Receipt Date: 20250905
  Transmission Date: 20251021
  Serious: No
  Sender: DOMPE FARMACEUTICI
  Company Number: US-FARMAPROD-202402-0602

PATIENT
  Age: 67 Year
  Sex: Female

DRUGS (12)
  1. OXERVATE [Suspect]
     Active Substance: CENEGERMIN-BKBJ
     Indication: Neurotrophic keratopathy
     Route: 047
     Dates: start: 20240219, end: 20240415
  2. OXERVATE [Suspect]
     Active Substance: CENEGERMIN-BKBJ
  3. OXERVATE [Suspect]
     Active Substance: CENEGERMIN-BKBJ
  4. OXERVATE [Suspect]
     Active Substance: CENEGERMIN-BKBJ
     Route: 047
     Dates: start: 20241106
  5. OXERVATE [Suspect]
     Active Substance: CENEGERMIN-BKBJ
  6. ACYCLOVIR [Concomitant]
     Active Substance: ACYCLOVIR
  7. ATORVASTATIN CALCIUM [Concomitant]
     Active Substance: ATORVASTATIN CALCIUM
  8. LOSARTAN POTASSIUM [Concomitant]
     Active Substance: LOSARTAN POTASSIUM
  9. VITAMIN D-400 [Concomitant]
  10. PENICILLIN V POTASSIUM [Concomitant]
     Active Substance: PENICILLIN V POTASSIUM
  11. WHOLE BLOOD [Concomitant]
     Active Substance: WHOLE BLOOD
  12. NEUTROGENA RETINOL MOISTURIZER [Concomitant]

REACTIONS (12)
  - Eye pain [Not Recovered/Not Resolved]
  - Respiratory tract infection [Unknown]
  - Eye irritation [Unknown]
  - Eye irritation [Not Recovered/Not Resolved]
  - Rash [Unknown]
  - Apraxia [Not Recovered/Not Resolved]
  - Dry eye [Not Recovered/Not Resolved]
  - Neuralgia [Unknown]
  - Photophobia [Not Recovered/Not Resolved]
  - Eye swelling [Not Recovered/Not Resolved]
  - Off label use [Not Recovered/Not Resolved]
  - Therapy interrupted [Unknown]

NARRATIVE: CASE EVENT DATE: 20240219
